FAERS Safety Report 7157768-3 (Version None)
Quarter: 2010Q4

REPORT INFORMATION
  Report Type: 
  Country: None (occurrence: None)
  Receive Date: 20101214
  Receipt Date: 20100208
  Transmission Date: 20110411
  Serious: No
  Sender: FDA-Public Use
  Company Number: US-ASTRAZENECA-2010SE05520

PATIENT
  Age: 58 Year
  Sex: Female

DRUGS (2)
  1. CRESTOR [Suspect]
     Route: 048
     Dates: start: 20081201, end: 20091001
  2. CRESTOR [Suspect]
     Route: 048
     Dates: start: 20091001

REACTIONS (2)
  - BACK PAIN [None]
  - MYALGIA [None]
